FAERS Safety Report 10899057 (Version 1)
Quarter: 2015Q1

REPORT INFORMATION
  Report Type: Spontaneous
  Country: CH (occurrence: CH)
  Receive Date: 20150309
  Receipt Date: 20150309
  Transmission Date: 20150721
  Serious: Yes (Hospitalization, Other)
  Sender: FDA-Public Use
  Company Number: CH-ASTRAZENECA-2015SE13005

PATIENT
  Age: 65 Year
  Sex: Male

DRUGS (5)
  1. CARDIAX ASS [Concomitant]
  2. CRESTOR [Suspect]
     Active Substance: ROSUVASTATIN CALCIUM
     Route: 048
  3. CRESTOR [Suspect]
     Active Substance: ROSUVASTATIN CALCIUM
     Route: 048
  4. LIVAZO [Concomitant]
     Active Substance: PITAVASTATIN CALCIUM
  5. GLUCOSAMINE FSN [Concomitant]

REACTIONS (18)
  - Myocardial infarction [Unknown]
  - Peripheral swelling [Unknown]
  - Coronary artery disease [Unknown]
  - Hypercholesterolaemia [Unknown]
  - QRS axis abnormal [Unknown]
  - Cardiac septal hypertrophy [Unknown]
  - Intentional product misuse [Unknown]
  - Ventricular extrasystoles [Unknown]
  - Glucose tolerance impaired [Unknown]
  - Rash pruritic [Unknown]
  - Blood glucose increased [Unknown]
  - Arteriosclerosis coronary artery [Unknown]
  - Ejection fraction decreased [Unknown]
  - Rash erythematous [Unknown]
  - Osteoarthritis [Unknown]
  - Angioedema [Unknown]
  - Cardiac aneurysm [Unknown]
  - Hypertension [Unknown]

NARRATIVE: CASE EVENT DATE: 2010
